FAERS Safety Report 8602737 (Version 3)
Quarter: 2013Q3

REPORT INFORMATION
  Report Type: Spontaneous
  Country: BR (occurrence: BR)
  Receive Date: 20120607
  Receipt Date: 20130814
  Transmission Date: 20140515
  Serious: Yes (Other)
  Sender: FDA-Public Use
  Company Number: BR-AMGEN-BRASP2012034582

PATIENT
  Age: 51 Year
  Sex: Male
  Weight: 122 kg

DRUGS (13)
  1. ENBREL [Suspect]
     Indication: RHEUMATOID ARTHRITIS
     Dosage: 25 MG, 2X/WEEK
     Route: 065
     Dates: start: 2010
  2. ENBREL [Suspect]
     Dosage: 50 MG, QWK
     Route: 058
     Dates: end: 201205
  3. ENBREL [Suspect]
     Dosage: 25 MG, 2X/WEEK
     Route: 065
     Dates: start: 20130709
  4. LOSARTAN [Concomitant]
     Dosage: 1 TABLET OF 50 MG, 1X/DAY
     Route: 048
  5. HYDROCHLOROTHIAZIDE [Concomitant]
     Dosage: UNK UNK, UNK
  6. PREDNISONE [Concomitant]
     Dosage: UNK UNK, UNK
  7. METHOTREXATE [Concomitant]
     Dosage: 5 TABLETS, 1X/WEEK
     Route: 048
  8. FOLIC ACID [Concomitant]
     Dosage: UNK
  9. OMEPRAZOLE [Concomitant]
     Dosage: 20 MG, QD
     Route: 048
  10. LEXOTAN [Concomitant]
     Dosage: 3 MG, 1X/DAY
     Route: 048
  11. REUQUINOL [Concomitant]
     Dosage: UNK
  12. CALCIUM [Concomitant]
     Dosage: UNK
  13. VITAMIN D                          /00107901/ [Concomitant]
     Dosage: UNK

REACTIONS (8)
  - Wound [Unknown]
  - Poor peripheral circulation [Unknown]
  - Wound complication [Unknown]
  - Arthropod bite [Unknown]
  - Wrong technique in drug usage process [Unknown]
  - Weight increased [Unknown]
  - Injection site pain [Not Recovered/Not Resolved]
  - Injection site erythema [Unknown]
